FAERS Safety Report 14350311 (Version 3)
Quarter: 2018Q1

REPORT INFORMATION
  Report Type: Spontaneous
  Country: US (occurrence: US)
  Receive Date: 20180104
  Receipt Date: 20180302
  Transmission Date: 20180509
  Serious: No
  Sender: FDA-Public Use
  Company Number: US-PFIZER INC-2018002546

PATIENT
  Age: 65 Year
  Sex: Female

DRUGS (7)
  1. LORAZEPAM. [Suspect]
     Active Substance: LORAZEPAM
     Dosage: 0.5 MG, UNK
  2. METHYLPREDNISOLONE. [Suspect]
     Active Substance: METHYLPREDNISOLONE
     Indication: INFUSION RELATED REACTION
     Dosage: 125 MG, UNK
     Route: 042
  3. FAMOTIDINE. [Suspect]
     Active Substance: FAMOTIDINE
     Indication: INFUSION RELATED REACTION
     Dosage: 20 MG, UNK
  4. SODIUM CHLORIDE. [Suspect]
     Active Substance: SODIUM CHLORIDE
     Indication: INFUSION RELATED REACTION
     Dosage: 500 ML, UNK
     Route: 040
  5. EPINEPHRINE. [Suspect]
     Active Substance: EPINEPHRINE
     Indication: INFUSION RELATED REACTION
     Dosage: 0.3 MG, UNK
  6. AVELUMAB [Concomitant]
     Active Substance: AVELUMAB
     Indication: OVARIAN CANCER
     Dosage: 10 MG/KG, 2X/WEEK
     Route: 042
     Dates: start: 20171220, end: 20171222
  7. DIPHENHYDRAMINE HCL [Suspect]
     Active Substance: DIPHENHYDRAMINE HYDROCHLORIDE
     Dosage: 50 MG, UNK
     Route: 042

REACTIONS (1)
  - No adverse event [Recovered/Resolved]
